FAERS Safety Report 25771455 (Version 1)
Quarter: 2025Q3

REPORT INFORMATION
  Report Type: Spontaneous
  Country: US (occurrence: US)
  Receive Date: 20250908
  Receipt Date: 20250908
  Transmission Date: 20251021
  Serious: No
  Sender: DOMPE FARMACEUTICI
  Company Number: US-FARMAPROD-202504-1271

PATIENT
  Age: 72 Year
  Sex: Female

DRUGS (8)
  1. OXERVATE [Suspect]
     Active Substance: CENEGERMIN-BKBJ
     Indication: Neurotrophic keratopathy
     Route: 047
     Dates: start: 20250411
  2. OXERVATE [Suspect]
     Active Substance: CENEGERMIN-BKBJ
  3. MAGNESIUM [Concomitant]
     Active Substance: MAGNESIUM
  4. CITRACAL PLUS BONE DENSITY [Concomitant]
  5. OMEGA-3 ACIDS [Concomitant]
     Active Substance: OMEGA-3 FATTY ACIDS
  6. MELATONIN [Concomitant]
     Active Substance: MELATONIN
  7. ASPIRIN [Concomitant]
     Active Substance: ASPIRIN
  8. LISINOPRIL [Concomitant]
     Active Substance: LISINOPRIL

REACTIONS (5)
  - Product dose omission issue [Unknown]
  - Eye pain [Unknown]
  - Eye swelling [Unknown]
  - Periorbital pain [Recovering/Resolving]
  - Eye irritation [Recovering/Resolving]

NARRATIVE: CASE EVENT DATE: 20250417
